FAERS Safety Report 10812001 (Version 1)
Quarter: 2015Q1

REPORT INFORMATION
  Report Type: Report from Study
  Country: US (occurrence: US)
  Receive Date: 20150217
  Receipt Date: 20150217
  Transmission Date: 20150721
  Serious: Yes (Death, Hospitalization)
  Sender: FDA-Public Use
  Company Number: US-ROCHE-1029924

PATIENT
  Age: 77 Year
  Sex: Female
  Weight: 77.7 kg

DRUGS (3)
  1. BEVACIZUMAB [Suspect]
     Active Substance: BEVACIZUMAB
     Indication: ENDOMETRIAL ADENOCARCINOMA
     Dosage: OVER 30-90 MINS ON DAY 1 (21 DAYS CYCLE). DATE OF LAST DOSE PRIOR TO SAE: 12/OCT/2011
     Route: 042
     Dates: start: 20110803
  2. IXABEPILONE [Suspect]
     Active Substance: IXABEPILONE
     Indication: ENDOMETRIAL ADENOCARCINOMA
     Dosage: OVER 1 HOUR ON DAY 1 (21 DAYS CYCLE). DATE OF LAST DOSE PRIOR TO SAE: 12/OCT/2011
     Route: 042
     Dates: start: 20110803
  3. CARBOPLATIN. [Suspect]
     Active Substance: CARBOPLATIN
     Indication: ENDOMETRIAL ADENOCARCINOMA
     Dosage: AUC=6,OVER 30 MINS ON DAY 1 FOR 6 CYCLES. (21 DAYS CYCLE).DATE OF THE LAST DOSE PRIOR TO SAE: 12/OCT
     Route: 042
     Dates: start: 20110803

REACTIONS (8)
  - Vomiting [Unknown]
  - Diarrhoea [Unknown]
  - Neutrophil count decreased [Unknown]
  - White blood cell count decreased [Unknown]
  - Nausea [Unknown]
  - Multi-organ failure [Fatal]
  - Dehydration [Unknown]
  - Platelet count decreased [Unknown]

NARRATIVE: CASE EVENT DATE: 20111014
